FAERS Safety Report 5579049-1 (Version None)
Quarter: 2007Q4

REPORT INFORMATION
  Report Type: 
  Country: None (occurrence: None)
  Receive Date: 20071228
  Receipt Date: 20071228
  Transmission Date: 20080405
  Serious: Yes (Other)
  Sender: FDA-Public Use
  Company Number: None

PATIENT
  Age: 73 Year
  Sex: Female
  Weight: 52 kg

DRUGS (1)
  1. ISOVUE-370 [Suspect]
     Indication: CATHETERISATION CARDIAC
     Dosage: 250 ML  ONCE  IV
     Route: 042
     Dates: start: 20071201, end: 20071201

REACTIONS (2)
  - ELECTROCARDIOGRAM ST SEGMENT ELEVATION [None]
  - PROCEDURAL HYPOTENSION [None]
